FAERS Safety Report 7024222-9 (Version None)
Quarter: 2010Q4

REPORT INFORMATION
  Report Type: 
  Country: None (occurrence: None)
  Receive Date: 20101001
  Receipt Date: 20100927
  Transmission Date: 20110411
  Serious: Yes (Death, Hospitalization)
  Sender: FDA-Public Use
  Company Number: BR-SHIRE-SPV1-2010-01508

PATIENT
  Sex: Male

DRUGS (5)
  1. IDURSULFASE [Suspect]
     Indication: MUCOPOLYSACCHARIDOSIS II
     Route: 041
     Dates: start: 20080626
  2. MIDAZOLAM HCL [Concomitant]
     Indication: SLEEP DISORDER
     Dosage: 7.5 MG, AS REQ'D
     Route: 048
     Dates: start: 20080601
  3. MELLERIL                           /00034201/ [Concomitant]
     Indication: ABNORMAL BEHAVIOUR
     Dosage: 50 MG, 2X/DAY:BID
     Route: 048
     Dates: start: 20080601
  4. METILBETASONE [Concomitant]
     Indication: PREMEDICATION
     Dosage: 12.5 MG, 1X/WEEK
     Route: 042
     Dates: start: 20080101
  5. CARBAMAZEPINE [Concomitant]
     Indication: NERVOUS SYSTEM DISORDER
     Dosage: 100 MG, 1X/DAY:QD
     Route: 048
     Dates: start: 20040401

REACTIONS (2)
  - ACUTE RESPIRATORY FAILURE [None]
  - MULTI-ORGAN FAILURE [None]
